FAERS Safety Report 17093604 (Version 2)
Quarter: 2019Q4

REPORT INFORMATION
  Report Type: Report from Study
  Country: None (occurrence: PH)
  Receive Date: 20191129
  Receipt Date: 20191205
  Transmission Date: 20200122
  Serious: Yes (Death)
  Sender: FDA-Public Use
  Company Number: PH-ABBVIE-19K-128-3167769-00

PATIENT
  Age: 88 Year
  Sex: Male

DRUGS (1)
  1. IMBRUVICA [Suspect]
     Active Substance: IBRUTINIB
     Indication: PRODUCT USED FOR UNKNOWN INDICATION
     Route: 048
     Dates: start: 20190924, end: 20191101

REACTIONS (1)
  - Cardiac failure [Fatal]
